FAERS Safety Report 6292379-3 (Version None)
Quarter: 2009Q3

REPORT INFORMATION
  Report Type: 
  Country: None (occurrence: None)
  Receive Date: 20090731
  Receipt Date: 20090724
  Transmission Date: 20100115
  Serious: Yes (Other)
  Sender: FDA-Public Use
  Company Number: FR-TEVA-203099ISR

PATIENT
  Age: 35 Year
  Sex: Female

DRUGS (2)
  1. METHOTREXATE [Suspect]
  2. INFLIXIMAB [Concomitant]
     Indication: SPONDYLITIS
     Route: 042

REACTIONS (3)
  - HEPATITIS B [None]
  - TRANSAMINASES INCREASED [None]
  - VIRAL LOAD INCREASED [None]
